FAERS Safety Report 8126858-0 (Version None)
Quarter: 2012Q1

REPORT INFORMATION
  Report Type: 
  Country: None (occurrence: None)
  Receive Date: 20120210
  Receipt Date: 20120206
  Transmission Date: 20120608
  Serious: No
  Sender: FDA-Public Use
  Company Number: US-PFIZER INC-2012033042

PATIENT
  Sex: Female
  Weight: 58.05 kg

DRUGS (4)
  1. PREMPRO [Concomitant]
     Indication: MENOPAUSE
     Dosage: 0.45/1.5 MG, DAILY
  2. ACETYLSALICYLIC ACID [Concomitant]
     Dosage: 81 MG, DAILY
  3. ATORVASTATIN CALCIUM [Suspect]
     Indication: BLOOD CHOLESTEROL INCREASED
     Dosage: 10 MG, DAILY
     Route: 048
     Dates: start: 20111203
  4. CALCIUM [Concomitant]
     Dosage: 600 MG, 2X/DAY

REACTIONS (2)
  - HOT FLUSH [None]
  - EXPIRED DRUG ADMINISTERED [None]
